FAERS Safety Report 10416331 (Version 1)
Quarter: 2014Q3

REPORT INFORMATION
  Report Type: Spontaneous
  Country: US (occurrence: None)
  Receive Date: 20140827
  Receipt Date: 20140827
  Transmission Date: 20150326
  Serious: Yes (Other)
  Sender: FDA-Public Use
  Company Number: None

PATIENT
  Age: 59 Year
  Sex: Female
  Weight: 52.16 kg

DRUGS (1)
  1. NITROFURANTOIN. [Suspect]
     Active Substance: NITROFURANTOIN
     Indication: URINARY TRACT INFECTION
     Route: 048
     Dates: start: 20140818, end: 20140824

REACTIONS (8)
  - Tremor [None]
  - Painful respiration [None]
  - Pain [None]
  - Abdominal discomfort [None]
  - Decreased appetite [None]
  - Body temperature increased [None]
  - Chest pain [None]
  - Chills [None]

NARRATIVE: CASE EVENT DATE: 20140825
